FAERS Safety Report 7712223-4 (Version None)
Quarter: 2011Q3

REPORT INFORMATION
  Report Type: 
  Country: None (occurrence: None)
  Receive Date: 20110826
  Receipt Date: 20110822
  Transmission Date: 20111222
  Serious: Yes (Congenital Anomaly, Other)
  Sender: FDA-Public Use
  Company Number: US-PFIZER INC-2011195045

PATIENT
  Sex: Male
  Weight: 3.4 kg

DRUGS (2)
  1. ZOLOFT [Suspect]
     Dosage: 100 MG, ^60^
     Route: 064
     Dates: start: 20040305
  2. ZOLOFT [Suspect]
     Dosage: 50 MG, ^60^
     Route: 064
     Dates: start: 20040127

REACTIONS (5)
  - CYANOSIS [None]
  - CARDIAC SEPTAL DEFECT [None]
  - CARDIAC MURMUR [None]
  - MATERNAL EXPOSURE DURING PREGNANCY [None]
  - VENTRICULAR SEPTAL DEFECT [None]
